FAERS Safety Report 5020907-4 (Version None)
Quarter: 2006Q2

REPORT INFORMATION
  Report Type: 
  Country: None (occurrence: None)
  Receive Date: 20060602
  Receipt Date: 20060526
  Transmission Date: 20061013
  Serious: Yes (Disabling, Other)
  Sender: FDA-Public Use
  Company Number: 27536-1

PATIENT
  Age: 30 Year
  Sex: Female

DRUGS (6)
  1. CYTARABINE [Suspect]
     Indication: ACUTE MYELOID LEUKAEMIA
     Dosage: 100MG/M2/IV OVER 24 HOURS FOR
     Dates: start: 20020301, end: 20020307
  2. GENTAMICIN [Concomitant]
  3. FORTAZ [Concomitant]
  4. IDARUBICIN HCL [Concomitant]
  5. DEXAMETHASONE TAB [Concomitant]
  6. ANZEMET [Concomitant]

REACTIONS (5)
  - BRAIN DAMAGE [None]
  - MENINGITIS BACTERIAL [None]
  - PARALYSIS [None]
  - PLATELET COUNT DECREASED [None]
  - WHITE BLOOD CELL COUNT DECREASED [None]
